FAERS Safety Report 8615831-1 (Version None)
Quarter: 2012Q3

REPORT INFORMATION
  Report Type: 
  Country: None (occurrence: None)
  Receive Date: 20120823
  Receipt Date: 20120817
  Transmission Date: 20120928
  Serious: Yes (Other)
  Sender: FDA-Public Use
  Company Number: PHHY2012GB058371

PATIENT
  Age: 66 Year
  Sex: Female

DRUGS (2)
  1. ATORVASTATIN [Concomitant]
     Dosage: 10 MG, UNK
     Dates: start: 20100101
  2. NITROFURANTOIN [Suspect]
     Indication: BLADDER DISORDER

REACTIONS (3)
  - ERYTHEMA [None]
  - SKIN BURNING SENSATION [None]
  - SKIN IRRITATION [None]
